FAERS Safety Report 17467355 (Version 2)
Quarter: 2020Q1

REPORT INFORMATION
  Report Type: Spontaneous
  Country: US (occurrence: US)
  Receive Date: 20200227
  Receipt Date: 20200306
  Transmission Date: 20200409
  Serious: No
  Sender: FDA-Public Use
  Company Number: US-PFIZER INC-2020084849

PATIENT
  Age: 52 Year
  Sex: Male
  Weight: 115.8 kg

DRUGS (7)
  1. ATORVASTATIN [Concomitant]
     Active Substance: ATORVASTATIN
     Indication: DIABETES MELLITUS
     Dosage: 40 MG ONCE A DAY AT BEDTIME
     Route: 048
  2. CHANTIX [Suspect]
     Active Substance: VARENICLINE TARTRATE
     Indication: SMOKING CESSATION THERAPY
     Dosage: 0.5 MG, UNK (TAKE AS DIRECTED PER BOX INSTRUCTIONS)
  3. CHANTIX [Suspect]
     Active Substance: VARENICLINE TARTRATE
     Dosage: 1 MG, 2X/DAY (THEN 1 MG BID (TWICE A DAY) X 11 WEEKS)
  4. CHANTIX [Suspect]
     Active Substance: VARENICLINE TARTRATE
     Dosage: 1 MG, UNK (TAKE AS DIRECTED PER BOX INSTRUCTIONS)
  5. CHANTIX [Suspect]
     Active Substance: VARENICLINE TARTRATE
     Dosage: 0.5 MG, 2X/DAY (THEN 0.5 MG PO (ORALLY) BID (TWICE A DAY) X4 DAYS)
     Route: 048
  6. CHANTIX [Suspect]
     Active Substance: VARENICLINE TARTRATE
     Dosage: 0.5 MG, 1X/DAY (0.5MG PO (ORALLY) QD (ONCE A DAY) X 3 DAYS)
     Route: 048
  7. ATORVASTATIN [Concomitant]
     Active Substance: ATORVASTATIN
     Indication: HYPERTENSION

REACTIONS (4)
  - Dyspnoea [Unknown]
  - Excessive exercise [Unknown]
  - Nicotine dependence [Unknown]
  - Abnormal dreams [Unknown]

NARRATIVE: CASE EVENT DATE: 20180305
